FAERS Safety Report 4566130-9 (Version None)
Quarter: 2005Q1

REPORT INFORMATION
  Report Type: 
  Country: None (occurrence: None)
  Receive Date: 20050126
  Receipt Date: 20050126
  Transmission Date: 20050727
  Serious: Yes (Disabling)
  Sender: FDA-Public Use
  Company Number: None

PATIENT
  Age: 25 Year
  Sex: Female
  Weight: 79.3795 kg

DRUGS (4)
  1. DILANTIN [Suspect]
     Indication: CONVULSION
     Dosage: 100 MG -TID ; 50 MG QD
  2. HADOL [Concomitant]
  3. DEPAKOTE [Concomitant]
  4. KEPPRA [Concomitant]

REACTIONS (1)
  - AGGRESSION [None]
